FAERS Safety Report 12290468 (Version 2)
Quarter: 2016Q2

REPORT INFORMATION
  Report Type: Report from Study
  Country: US (occurrence: US)
  Receive Date: 20160421
  Receipt Date: 20160427
  Transmission Date: 20160815
  Serious: Yes (Hospitalization, Other)
  Sender: FDA-Public Use
  Company Number: US-GILEAD-2016-0209785

PATIENT
  Age: 72 Year
  Sex: Female

DRUGS (12)
  1. VALSARTAN. [Concomitant]
     Active Substance: VALSARTAN
  2. LASIX [Concomitant]
     Active Substance: FUROSEMIDE
  3. OMEPRAZOLE. [Concomitant]
     Active Substance: OMEPRAZOLE
  4. LIPITOR [Concomitant]
     Active Substance: ATORVASTATIN CALCIUM
  5. WARFARIN [Concomitant]
     Active Substance: WARFARIN
  6. ADCIRCA [Suspect]
     Active Substance: TADALAFIL
     Indication: PULMONARY HYPERTENSION
     Route: 065
  7. ALEVE [Concomitant]
     Active Substance: NAPROXEN SODIUM
  8. POTASSIUM [Concomitant]
     Active Substance: POTASSIUM
  9. XARELTO [Concomitant]
     Active Substance: RIVAROXABAN
  10. AMBRISENTAN [Suspect]
     Active Substance: AMBRISENTAN
     Indication: PULMONARY HYPERTENSION
     Dosage: 10 MG, QD
     Route: 065
     Dates: start: 20160116, end: 20160329
  11. OCUVITE [Concomitant]
     Active Substance: VITAMINS
  12. VALSARTAN AND HYDROCHLOROTHIAZIDE [Concomitant]
     Active Substance: HYDROCHLOROTHIAZIDE\VALSARTAN

REACTIONS (1)
  - Pulmonary thrombosis [Recovered/Resolved]

NARRATIVE: CASE EVENT DATE: 20160328
